FAERS Safety Report 19535878 (Version 1)
Quarter: 2021Q3

REPORT INFORMATION
  Report Type: Spontaneous
  Country: DE (occurrence: DE)
  Receive Date: 20210713
  Receipt Date: 20210713
  Transmission Date: 20211014
  Serious: Yes (Hospitalization, Other)
  Sender: FDA-Public Use
  Company Number: DE-SUN PHARMACEUTICAL INDUSTRIES LTD-2021RR-304187

PATIENT
  Age: 77 Year
  Sex: Female
  Weight: 50 kg

DRUGS (7)
  1. RAMIPRIL. [Concomitant]
     Active Substance: RAMIPRIL
     Indication: PRODUCT USED FOR UNKNOWN INDICATION
     Dosage: 2.5 MG, 1?0?0?0, TABLETS ()
     Route: 048
  2. HUMALOG 1000E. 100E./ML [Concomitant]
     Indication: PRODUCT USED FOR UNKNOWN INDICATION
     Dosage: ACCORDING TO SCHEME, INJECTION / INFUSION SOLUTION
     Route: 058
  3. 5?FU [Suspect]
     Active Substance: FLUOROURACIL
     Indication: PRODUCT USED FOR UNKNOWN INDICATION
     Dosage: ACCORDING TO SCHEME, INJECTION / INFUSION SOLUTION
     Route: 042
  4. PANTOPRAZOL [Concomitant]
     Active Substance: PANTOPRAZOLE SODIUM
     Indication: PRODUCT USED FOR UNKNOWN INDICATION
     Dosage: 40 MG, 1?0?0?0, TABLETTEN ()
     Route: 048
  5. METAMIZOL [Concomitant]
     Active Substance: METAMIZOLE SODIUM
     Indication: PRODUCT USED FOR UNKNOWN INDICATION
     Dosage: 500 MG, 1?1?1?0, TABLETS()
     Route: 048
  6. OXALIPLATIN. [Suspect]
     Active Substance: OXALIPLATIN
     Indication: PRODUCT USED FOR UNKNOWN INDICATION
     Dosage: ACCORDING TO SCHEME, SOLUTION FOR INJECTION / INFUSION
     Route: 042
  7. SIMVASTATIN. [Concomitant]
     Active Substance: SIMVASTATIN
     Indication: PRODUCT USED FOR UNKNOWN INDICATION
     Dosage: 20 MG, 0?0?1?0, TABLETS ()
     Route: 048

REACTIONS (5)
  - Thrombosis [Not Recovered/Not Resolved]
  - Peripheral swelling [Not Recovered/Not Resolved]
  - Pain in extremity [Not Recovered/Not Resolved]
  - Arthralgia [Not Recovered/Not Resolved]
  - Joint swelling [Not Recovered/Not Resolved]
